FAERS Safety Report 8847934 (Version 3)
Quarter: 2012Q4

REPORT INFORMATION
  Report Type: 
  Country: JP (occurrence: JP)
  Receive Date: 20121018
  Receipt Date: 20121204
  Transmission Date: 20130627
  Serious: Yes (Other)
  Sender: FDA-Public Use
  Company Number: JP-ROCHE-1145765

PATIENT
  Age: 84 Year
  Sex: Male

DRUGS (2)
  1. RANIBIZUMAB [Suspect]
     Indication: POLYPOIDAL CHOROIDAL VASCULOPATHY
     Route: 050
  2. SULFUR HEXAFLUORIDE [Concomitant]

REACTIONS (2)
  - Macular scar [Unknown]
  - Vitreous haemorrhage [Unknown]
